FAERS Safety Report 15738886 (Version 3)
Quarter: 2019Q1

REPORT INFORMATION
  Report Type: Spontaneous
  Country: JP (occurrence: JP)
  Receive Date: 20181219
  Receipt Date: 20190326
  Transmission Date: 20190417
  Serious: Yes (Hospitalization, Other)
  Sender: FDA-Public Use
  Company Number: JP-AMGEN-JPNSP2018179819

PATIENT
  Age: 69 Year
  Sex: Female
  Weight: 35 kg

DRUGS (26)
  1. TS-1 [Concomitant]
     Active Substance: GIMERACIL\OTERACIL\TEGAFUR
     Indication: METASTASES TO BONE
  2. RANMARK [Suspect]
     Active Substance: DENOSUMAB
     Indication: METASTASES TO BONE
     Dosage: 120 MG, QMO
     Route: 058
     Dates: start: 20120620
  3. TS-1 [Concomitant]
     Active Substance: GIMERACIL\OTERACIL\TEGAFUR
     Indication: BREAST CANCER
     Dosage: 2 DF, BID
     Route: 048
     Dates: start: 20150121
  4. SAWACILLIN [Concomitant]
     Active Substance: AMOXICILLIN
     Dosage: 1 DOSAGE FORM, QID
     Route: 065
  5. EMPYNASE P [Concomitant]
     Active Substance: PROTEASE
     Dosage: UNK
     Route: 065
  6. NOLVADEX [Concomitant]
     Active Substance: TAMOXIFEN CITRATE
     Dosage: 20 MG, QD
     Route: 065
     Dates: start: 20140730, end: 20150121
  7. AFTACH [Concomitant]
     Active Substance: TRIAMCINOLONE
     Dosage: 25 MICROGRAM, QD
     Route: 049
     Dates: start: 20150121
  8. MEDROL [Concomitant]
     Active Substance: METHYLPREDNISOLONE
     Dosage: UNK
     Route: 065
     Dates: start: 20140730, end: 20150121
  9. LOXONIN [Concomitant]
     Active Substance: LOXOPROFEN SODIUM
     Dosage: UNK
     Route: 050
     Dates: start: 20121107, end: 20140730
  10. CRAVIT [Concomitant]
     Active Substance: LEVOFLOXACIN
     Dosage: 500 MG, QD
     Route: 048
  11. CRAVIT [Concomitant]
     Active Substance: LEVOFLOXACIN
     Dosage: 500 MG, QD
     Route: 048
     Dates: start: 20150121
  12. PL [Concomitant]
     Active Substance: ACETAMINOPHEN\CAFFEINE\PROMETHAZINE\SALICYLAMIDE
     Dosage: 1 GRAM, TID
     Route: 048
     Dates: start: 20140730, end: 20150121
  13. BKM 120 [Concomitant]
     Active Substance: BUPARLISIB HYDROCHLORIDE
     Dosage: 2 DOSAGE FORM, QD
     Route: 065
     Dates: start: 20121107, end: 20140730
  14. ENDOXAN [Suspect]
     Active Substance: CYCLOPHOSPHAMIDE
     Indication: BREAST CANCER
     Dosage: 50 MG, BID
     Route: 048
     Dates: start: 20150121
  15. LOXONIN [Concomitant]
     Active Substance: LOXOPROFEN SODIUM
     Dosage: UNK
     Route: 050
     Dates: start: 20150121
  16. MUCODYNE [Concomitant]
     Active Substance: CARBOCYSTEINE
     Dosage: 250 MILLIGRAM, TID
     Route: 065
  17. TERNELIN [Concomitant]
     Active Substance: TIZANIDINE
     Dosage: 1 MILLIGRAM, TID
     Route: 065
     Dates: start: 20140730, end: 20150121
  18. SP TROCHE [Concomitant]
     Active Substance: DEQUALINIUM CHLORIDE
     Dosage: 0.25 MILLIGRAM, QID
     Route: 048
     Dates: start: 20150121
  19. LYRICA [Concomitant]
     Active Substance: PREGABALIN
     Dosage: 25 MILLIGRAM, BID
     Route: 048
     Dates: start: 20150121
  20. CELECOX [Concomitant]
     Active Substance: CELECOXIB
     Dosage: 100 MILLIGRAM, BID
     Route: 065
     Dates: start: 20121107, end: 20140730
  21. LOXONIN [Concomitant]
     Active Substance: LOXOPROFEN SODIUM
     Dosage: UNK, AS NEEDED
     Route: 065
  22. LOXOPROFEN [Concomitant]
     Active Substance: LOXOPROFEN
     Dosage: 60 MILLIGRAM, TID
     Route: 048
     Dates: start: 20150121
  23. LOXONIN [Concomitant]
     Active Substance: LOXOPROFEN SODIUM
     Dosage: UNK, AS NECESSARY
     Route: 065
  24. ENDOXAN [Suspect]
     Active Substance: CYCLOPHOSPHAMIDE
     Indication: METASTASES TO BONE
  25. DENOTAS [Concomitant]
     Active Substance: CALCIUM CARBONATE\CHOLECALCIFEROL\MAGNESIUM CARBONATE
     Dosage: 2 DF, QD
     Route: 048
     Dates: start: 20121107, end: 20140730
  26. DENOTAS [Concomitant]
     Active Substance: CALCIUM CARBONATE\CHOLECALCIFEROL\MAGNESIUM CARBONATE
     Dosage: 2 DF, QD
     Route: 048
     Dates: start: 20140730, end: 20150121

REACTIONS (4)
  - Osteonecrosis of jaw [Unknown]
  - Bladder perforation [Recovering/Resolving]
  - Meningitis [Recovering/Resolving]
  - Cystitis haemorrhagic [Recovering/Resolving]

NARRATIVE: CASE EVENT DATE: 20180820
